FAERS Safety Report 9188524 (Version 2)
Quarter: 2013Q1

REPORT INFORMATION
  Report Type: Spontaneous
  Country: DE (occurrence: DE)
  Receive Date: 20130325
  Receipt Date: 20130327
  Transmission Date: 20140127
  Serious: Yes (Other)
  Sender: FDA-Public Use
  Company Number: DE-ABBOTT-13P-062-1065816-00

PATIENT
  Sex: Male

DRUGS (4)
  1. NORVIR [Suspect]
     Indication: HIV INFECTION
  2. 5-FU [Suspect]
     Indication: PRODUCT USED FOR UNKNOWN INDICATION
  3. FOSAMPRENAVIR [Concomitant]
     Indication: PRODUCT USED FOR UNKNOWN INDICATION
  4. TRUVADA [Concomitant]
     Indication: PRODUCT USED FOR UNKNOWN INDICATION

REACTIONS (2)
  - Neoplasm [Not Recovered/Not Resolved]
  - Drug interaction [Unknown]
